FAERS Safety Report 8923500 (Version 1)
Quarter: 2012Q4

REPORT INFORMATION
  Report Type: Spontaneous
  Country: US (occurrence: None)
  Receive Date: 20121115
  Receipt Date: 20121115
  Transmission Date: 20130627
  Serious: No
  Sender: FDA-Public Use
  Company Number: None

PATIENT
  Age: 52 Year
  Sex: Female

DRUGS (1)
  1. DRONEDARONE [Suspect]
     Indication: ATRIAL FIBRILLATION
     Dates: start: 20101126, end: 20120125

REACTIONS (5)
  - Pruritus [None]
  - Rash [None]
  - Hepatotoxicity [None]
  - Alanine aminotransferase increased [None]
  - Aspartate aminotransferase increased [None]
